FAERS Safety Report 5044351-9 (Version None)
Quarter: 2006Q2

REPORT INFORMATION
  Report Type: 
  Country: None (occurrence: None)
  Receive Date: 20060629
  Receipt Date: 20060616
  Transmission Date: 20061013
  Serious: Yes (Hospitalization)
  Sender: FDA-Public Use
  Company Number: 2006077984

PATIENT
  Age: 72 Year
  Sex: Female

DRUGS (10)
  1. PREDNISOLONE [Suspect]
     Indication: RHEUMATOID ARTHRITIS
     Dosage: 5 MG (5 MG, 1 IN 1 D) ORAL
     Route: 048
     Dates: start: 20041202
  2. METHOTREXATE [Suspect]
     Indication: RHEUMATOID ARTHRITIS
     Dosage: 13 MG WEEKLY (2.5 MG) ORAL
     Route: 048
     Dates: start: 20041117, end: 20060302
  3. TRAMADOL HYDROCHLORIDE [Concomitant]
  4. OPTINATE SEPTIMUM               (RISEDRONATE SODIUM) [Concomitant]
  5. FOLACIN               (CALCIUM PHOSPHATE, FOLIC ACID) [Concomitant]
  6. ALVEDON                (PARACETAMOL) [Concomitant]
  7. PLAQUENIL [Concomitant]
  8. FUROSEMIDE [Concomitant]
  9. CALCICHEN-D3               (CALCIUM CARBONATE, COLECALCIFEROL) [Concomitant]
  10. ARAVA [Concomitant]

REACTIONS (6)
  - BACK PAIN [None]
  - CONDITION AGGRAVATED [None]
  - GENERAL PHYSICAL HEALTH DETERIORATION [None]
  - MULTIPLE FRACTURES [None]
  - PELVIC FRACTURE [None]
  - PERICARDIAL EFFUSION [None]
